FAERS Safety Report 5237941-1 (Version None)
Quarter: 2007Q1

REPORT INFORMATION
  Report Type: 
  Country: None (occurrence: None)
  Receive Date: 20070209
  Receipt Date: 20070131
  Transmission Date: 20070707
  Serious: Yes (Other)
  Sender: FDA-Public Use
  Company Number: 230007M07GBR

PATIENT
  Age: 37 Year
  Sex: Male

DRUGS (1)
  1. REBIF [Suspect]
     Indication: RELAPSING-REMITTING MULTIPLE SCLEROSIS
     Dosage: 44, 3 IN 1 WEEKS, SUBCUTANEOUS
     Route: 058
     Dates: start: 20030701

REACTIONS (1)
  - HODGKIN'S DISEASE [None]
